FAERS Safety Report 9914594 (Version 2)
Quarter: 2014Q1

REPORT INFORMATION
  Report Type: Report from Study
  Country: US (occurrence: US)
  Receive Date: 20140220
  Receipt Date: 20140220
  Transmission Date: 20141002
  Serious: Yes (Hospitalization)
  Sender: FDA-Public Use
  Company Number: US-SA-2014SA011436

PATIENT
  Age: 25 Year
  Sex: Male
  Weight: 43.27 kg

DRUGS (27)
  1. CLOFARABINE [Suspect]
     Indication: ACUTE MYELOID LEUKAEMIA
     Route: 065
  2. BUSULPHAN [Suspect]
     Indication: PRODUCT USED FOR UNKNOWN INDICATION
     Route: 065
  3. ACYCLOVIR [Concomitant]
     Indication: PROPHYLAXIS
     Route: 048
  4. FLUCONAZOLE [Concomitant]
     Indication: ANTIFUNGAL PROPHYLAXIS
     Route: 048
  5. DAPSONE [Concomitant]
     Indication: PROPHYLAXIS
     Route: 048
  6. PREDNISONE [Concomitant]
     Route: 048
  7. TACROLIMUS [Concomitant]
     Route: 048
  8. COUMADIN [Concomitant]
     Indication: VENA CAVA THROMBOSIS
     Route: 048
  9. COUMADIN [Concomitant]
     Indication: VENA CAVA THROMBOSIS
     Route: 048
     Dates: start: 20140209
  10. CEFEPIME [Concomitant]
     Indication: PYREXIA
     Dates: start: 20140203, end: 20140205
  11. CIPRO [Concomitant]
     Indication: PYREXIA
     Dates: start: 20140205, end: 20140209
  12. CARBAMAZEPINE [Concomitant]
     Indication: CHONDRODYSTROPHY
     Route: 048
  13. DILAUDID [Concomitant]
     Indication: PAIN MANAGEMENT
     Route: 042
  14. NEXIUM [Concomitant]
     Indication: GASTROOESOPHAGEAL REFLUX DISEASE
     Route: 048
  15. ZOFRAN [Concomitant]
     Indication: NAUSEA
     Route: 048
  16. ZOFRAN [Concomitant]
     Indication: VOMITING
     Route: 048
  17. REGLAN [Concomitant]
     Indication: NAUSEA
     Route: 048
  18. BECLOMETASONE [Concomitant]
     Indication: GRAFT VERSUS HOST DISEASE IN INTESTINE
  19. ACETAMINOPHEN [Concomitant]
     Indication: PAIN
     Route: 048
  20. ACETAMINOPHEN [Concomitant]
     Indication: PYREXIA
     Route: 048
  21. SULFAMETHOXAZOLE/TRIMETHOPRIM [Concomitant]
     Route: 048
  22. OS-CAL [Concomitant]
     Route: 048
  23. SENNA [Concomitant]
     Indication: CONSTIPATION
     Route: 048
  24. DOCUSATE SODIUM [Concomitant]
     Indication: CONSTIPATION
     Route: 048
  25. THIAMINE [Concomitant]
     Route: 048
  26. MULTIVITAMINS [Concomitant]
     Route: 048
  27. CETIRIZINE [Concomitant]
     Route: 048

REACTIONS (1)
  - Failure to thrive [Unknown]
